FAERS Safety Report 25661210 (Version 2)
Quarter: 2025Q3

REPORT INFORMATION
  Report Type: Spontaneous
  Country: US (occurrence: US)
  Receive Date: 20250808
  Receipt Date: 20250902
  Transmission Date: 20251021
  Serious: Yes (Other)
  Sender: AMGEN
  Company Number: US-AMGEN-USASP2025156438

PATIENT
  Sex: Female

DRUGS (2)
  1. EVENITY [Suspect]
     Active Substance: ROMOSOZUMAB-AQQG
     Indication: Product used for unknown indication
     Route: 065
     Dates: end: 202505
  2. EVENITY [Suspect]
     Active Substance: ROMOSOZUMAB-AQQG
     Route: 065
     Dates: start: 202506

REACTIONS (2)
  - Neck surgery [Recovered/Resolved]
  - Therapy interrupted [Unknown]

NARRATIVE: CASE EVENT DATE: 20250101
